FAERS Safety Report 6230698-7 (Version None)
Quarter: 2009Q2

REPORT INFORMATION
  Report Type: 
  Country: None (occurrence: None)
  Receive Date: 20090616
  Receipt Date: 20090610
  Transmission Date: 20091009
  Serious: Yes (Disabling, Other)
  Sender: FDA-Public Use
  Company Number: CH-BRISTOL-MYERS SQUIBB COMPANY-14657266

PATIENT
  Age: 65 Year
  Sex: Female

DRUGS (4)
  1. IXEMPRA KIT [Suspect]
     Indication: BREAST CANCER METASTATIC
     Dosage: RECEIVED ON 03APR09, 22APR09, 13MAY09, 09JUN09.
     Route: 042
     Dates: start: 20090513, end: 20090513
  2. H1 ANTAGONIST [Concomitant]
     Indication: PREMEDICATION
  3. H2 ANTAGONIST [Concomitant]
     Indication: PREMEDICATION
  4. DEXAMETHASONE [Concomitant]
     Indication: PREMEDICATION

REACTIONS (1)
  - VISUAL FIELD DEFECT [None]
